FAERS Safety Report 7329578-5 (Version None)
Quarter: 2011Q1

REPORT INFORMATION
  Report Type: 
  Country: None (occurrence: None)
  Receive Date: 20110303
  Receipt Date: 20110221
  Transmission Date: 20110831
  Serious: Yes (Hospitalization)
  Sender: FDA-Public Use
  Company Number: US-ACTELION-A-NJ2009-24398

PATIENT

DRUGS (2)
  1. TRACLEER [Suspect]
     Indication: PULMONARY ARTERIAL HYPERTENSION
     Route: 048
     Dates: start: 20080728
  2. REVATIO [Concomitant]

REACTIONS (7)
  - PULMONARY EMBOLISM [None]
  - RESPIRATORY RATE INCREASED [None]
  - DYSPNOEA [None]
  - PULMONARY ARTERIAL HYPERTENSION [None]
  - HEART RATE INCREASED [None]
  - ASTHENIA [None]
  - OXYGEN SATURATION DECREASED [None]
